FAERS Safety Report 9186927 (Version 1)
Quarter: 2013Q1

REPORT INFORMATION
  Report Type: Spontaneous
  Country: FR (occurrence: FR)
  Receive Date: 20130325
  Receipt Date: 20130325
  Transmission Date: 20140127
  Serious: Yes (Life-Threatening, Hospitalization)
  Sender: FDA-Public Use
  Company Number: FR-GLAXOSMITHKLINE-B0840639A

PATIENT
  Age: 59 Year
  Sex: Female

DRUGS (5)
  1. NIMBEX [Suspect]
     Indication: INDUCTION OF ANAESTHESIA
     Dosage: 50MG UNKNOWN
     Route: 042
     Dates: start: 20120907, end: 20120907
  2. SUFENTANIL [Suspect]
     Indication: INDUCTION OF ANAESTHESIA
     Dosage: 14MCG UNKNOWN
     Route: 042
     Dates: start: 20120907, end: 20120907
  3. GENTAMICIN [Suspect]
     Indication: ANTIBIOTIC PROPHYLAXIS
     Dosage: 160MG UNKNOWN
     Route: 042
     Dates: start: 20120907, end: 20120907
  4. CLINDAMYCINE [Suspect]
     Indication: ANTIBIOTIC PROPHYLAXIS
     Dosage: 600MG PER DAY
     Route: 065
     Dates: start: 20120907, end: 20120907
  5. DICETEL [Concomitant]

REACTIONS (3)
  - Anaphylactic shock [Recovered/Resolved]
  - Hypotension [Recovered/Resolved]
  - Tachycardia [Recovered/Resolved]
